FAERS Safety Report 12608009 (Version 2)
Quarter: 2016Q3

REPORT INFORMATION
  Report Type: Report from Study
  Country: BR (occurrence: BR)
  Receive Date: 20160729
  Receipt Date: 20160802
  Transmission Date: 20161109
  Serious: Yes (Death)
  Sender: FDA-Public Use
  Company Number: PHHY2016BR103952

PATIENT
  Age: 61 Year
  Sex: Female
  Weight: 33 kg

DRUGS (2)
  1. FORASEQ [Suspect]
     Active Substance: BUDESONIDE\FORMOTEROL FUMARATE
     Indication: EMPHYSEMA
     Dosage: 2 DF, QD
     Route: 055
  2. RIVOTRIL [Concomitant]
     Active Substance: CLONAZEPAM
     Indication: SLEEP DISORDER
     Dosage: 10 DRP, QHS STARTED MORE THAN 10 YEARS AGO
     Route: 048

REACTIONS (6)
  - Asthenia [Fatal]
  - Dyspnoea [Fatal]
  - Emphysema [Fatal]
  - General physical health deterioration [Fatal]
  - Cardio-respiratory arrest [Fatal]
  - Condition aggravated [Fatal]

NARRATIVE: CASE EVENT DATE: 2010
